FAERS Safety Report 20449296 (Version 1)
Quarter: 2022Q1

REPORT INFORMATION
  Report Type: Spontaneous
  Country: US (occurrence: None)
  Receive Date: 20220208
  Receipt Date: 20220208
  Transmission Date: 20220423
  Serious: Yes (Other)
  Sender: FDA-Public Use
  Company Number: None

PATIENT
  Age: 56 Year
  Sex: Female
  Weight: 72 kg

DRUGS (22)
  1. CAPECITABINE [Suspect]
     Active Substance: CAPECITABINE
     Indication: Breast cancer female
     Dosage: OTHER FREQUENCY : BIDX14 DAYS, 7OFF;?
     Route: 048
     Dates: start: 20211210
  2. CAPECITABINE [Suspect]
     Active Substance: CAPECITABINE
     Indication: Breast cancer female
     Dosage: OTHER FREQUENCY : BIDX14 DAYS, 7OFF;?
     Route: 048
     Dates: start: 20211210
  3. ALBUTEROL [Concomitant]
     Active Substance: ALBUTEROL
  4. PRALUENT [Concomitant]
     Active Substance: ALIROCUMAB
  5. VITAMIN D3 125MCG [Concomitant]
  6. VITAMIN B12 1000MCG [Concomitant]
  7. PROLIA [Concomitant]
     Active Substance: DENOSUMAB
  8. CYMBALTA [Concomitant]
     Active Substance: DULOXETINE HYDROCHLORIDE
  9. ERGOCALCIFEROL [Concomitant]
     Active Substance: ERGOCALCIFEROL
  10. FERROUS SULFATE 15MG [Concomitant]
  11. HYDROCHLOROTHIAZIDE [Concomitant]
     Active Substance: HYDROCHLOROTHIAZIDE
  12. LEVOTHYROXINE [Concomitant]
     Active Substance: LEVOTHYROXINE
  13. METFORMIN HYDROCHLORIDE [Concomitant]
     Active Substance: METFORMIN HYDROCHLORIDE
  14. VITAMINS [Concomitant]
     Active Substance: VITAMINS
  15. ZOFRAN [Concomitant]
     Active Substance: ONDANSETRON HYDROCHLORIDE
  16. POTASSIUM CHLORIDE [Concomitant]
     Active Substance: POTASSIUM CHLORIDE
  17. LYRICA [Concomitant]
     Active Substance: PREGABALIN
  18. TRAMADOL [Concomitant]
     Active Substance: TRAMADOL
  19. SILVER SULFADIAZINE 1% [Concomitant]
  20. MOMETASONE [Concomitant]
     Active Substance: MOMETASONE
  21. IMODIUM 2MG [Concomitant]
  22. UREA 40% [Concomitant]

REACTIONS (1)
  - Palmar-plantar erythrodysaesthesia syndrome [None]

NARRATIVE: CASE EVENT DATE: 20220125
